FAERS Safety Report 7605722-7 (Version None)
Quarter: 2011Q3

REPORT INFORMATION
  Report Type: 
  Country: None (occurrence: None)
  Receive Date: 20110713
  Receipt Date: 20110709
  Transmission Date: 20111222
  Serious: Yes (Other)
  Sender: FDA-Public Use
  Company Number: JP-PFIZER INC-2011155123

PATIENT
  Age: 75 Year
  Sex: Female

DRUGS (4)
  1. CADUET [Suspect]
     Dosage: UNK
     Route: 048
     Dates: start: 20110111, end: 20110706
  2. DIOVAN HCT [Suspect]
     Dosage: 1 DF, A DAY
     Route: 048
     Dates: start: 20110118, end: 20110705
  3. LYRICA [Suspect]
     Dosage: 25 MG, A DAY
     Route: 048
     Dates: start: 20110628, end: 20110705
  4. ALISKIREN FUMARATE [Suspect]
     Dosage: 300 MG, A DAY
     Route: 048
     Dates: start: 20110222, end: 20110630

REACTIONS (2)
  - HYPOTENSION [None]
  - RENAL IMPAIRMENT [None]
